FAERS Safety Report 8091701-5 (Version None)
Quarter: 2012Q1

REPORT INFORMATION
  Report Type: 
  Country: None (occurrence: None)
  Receive Date: 20120131
  Receipt Date: 20120127
  Transmission Date: 20120608
  Serious: No
  Sender: FDA-Public Use
  Company Number: US-PFIZER INC-2012018734

PATIENT
  Sex: Female
  Weight: 74.83 kg

DRUGS (8)
  1. LYRICA [Concomitant]
     Indication: ARTHRITIS
     Dosage: UNK
  2. CHANTIX [Suspect]
     Indication: SMOKING CESSATION THERAPY
     Dosage: 0.5 MG, DAILY
     Route: 048
     Dates: start: 20120121, end: 20120101
  3. CLONAZEPAM [Concomitant]
     Indication: ANXIETY
     Dosage: 0.5 MG, AS NEEDED
  4. CHANTIX [Suspect]
     Dosage: UNK
     Route: 048
     Dates: start: 20120101, end: 20120127
  5. FOLIC ACID [Concomitant]
     Dosage: UNK, TWO PILLS DAILY
  6. HYDROCODONE [Concomitant]
     Indication: ARTHRITIS
     Dosage: 10 MG, ONE TO THREE TIMES A DAY OR AS NEEDED
  7. METHOTREXATE [Concomitant]
     Indication: ARTHRITIS
     Dosage: 2.5 MG SEVEN PILLS A WEEK
  8. HYDROCHLOROTHIAZIDE [Concomitant]
     Indication: ARTHRITIS
     Dosage: 200 MG, 2X/DAY

REACTIONS (2)
  - INSOMNIA [None]
  - FEAR [None]
